FAERS Safety Report 5964615-1 (Version None)
Quarter: 2008Q4

REPORT INFORMATION
  Report Type: 
  Country: None (occurrence: None)
  Receive Date: 20081124
  Receipt Date: 20081124
  Transmission Date: 20090506
  Serious: No
  Sender: FDA-Public Use
  Company Number: None

PATIENT

DRUGS (3)
  1. ONDANSETRON [Suspect]
     Indication: CAESAREAN SECTION
     Dosage: 4MG X 1 IV
     Route: 042
     Dates: start: 20081121
  2. ONDANSETRON [Suspect]
     Indication: PROPHYLAXIS OF NAUSEA AND VOMITING
     Dosage: 4MG X 1 IV
     Route: 042
     Dates: start: 20081121
  3. SPINAL/EPIDURAL [Concomitant]

REACTIONS (4)
  - DRUG INEFFECTIVE [None]
  - PROCEDURAL NAUSEA [None]
  - PROCEDURAL VOMITING [None]
  - PRODUCT QUALITY ISSUE [None]
